FAERS Safety Report 21753942 (Version 6)
Quarter: 2023Q2

REPORT INFORMATION
  Report Type: Report from Study
  Country: JP (occurrence: JP)
  Receive Date: 20221220
  Receipt Date: 20230630
  Transmission Date: 20230722
  Serious: Yes (Hospitalization)
  Sender: FDA-Public Use
  Company Number: JP-ARGENX-2022-ARGX-JP002527

PATIENT
  Age: 59 Year
  Sex: Female
  Weight: 34.8 kg

DRUGS (42)
  1. VYVGART [Suspect]
     Active Substance: EFGARTIGIMOD ALFA-FCAB
     Indication: Myasthenia gravis
     Dosage: 340 MG
     Route: 041
     Dates: start: 20220616, end: 20220706
  2. VYVGART [Suspect]
     Active Substance: EFGARTIGIMOD ALFA-FCAB
     Dosage: 310 MG
     Route: 041
     Dates: start: 20220915, end: 20221006
  3. VYVGART [Suspect]
     Active Substance: EFGARTIGIMOD ALFA-FCAB
     Dosage: 320 MG
     Route: 041
     Dates: start: 20221117, end: 20221201
  4. VYVGART [Suspect]
     Active Substance: EFGARTIGIMOD ALFA-FCAB
     Dosage: 340 MG
     Route: 041
     Dates: start: 20230202, end: 20230223
  5. VYVGART [Suspect]
     Active Substance: EFGARTIGIMOD ALFA-FCAB
     Dosage: 380 MG
     Route: 041
     Dates: start: 20230406, end: 20230427
  6. PREDONINE [Suspect]
     Active Substance: PREDNISOLONE
     Indication: Myasthenia gravis
     Dosage: 20-35 MG
     Route: 048
     Dates: start: 20220516
  7. PREDONINE [Suspect]
     Active Substance: PREDNISOLONE
     Dosage: 20 MG
     Route: 048
  8. TACROLIMUS [Suspect]
     Active Substance: TACROLIMUS
     Indication: Myasthenia gravis
     Dosage: 3 MG
     Route: 048
     Dates: start: 20220516, end: 20230605
  9. SULFAMETHOXAZOLE\TRIMETHOPRIM [Suspect]
     Active Substance: SULFAMETHOXAZOLE\TRIMETHOPRIM
     Indication: Product used for unknown indication
     Dosage: 0.5 DF
     Route: 048
     Dates: start: 20220616
  10. MESTINON [Concomitant]
     Active Substance: PYRIDOSTIGMINE BROMIDE
     Indication: Myasthenia gravis
     Dosage: 90 MG
     Route: 048
     Dates: start: 20220516
  11. CYCLOSPORINE [Concomitant]
     Active Substance: CYCLOSPORINE
     Indication: Myasthenia gravis
     Dosage: 200 MG
     Route: 048
     Dates: start: 20230605
  12. AMINO ACIDS\DEXTROSE\ELECTROLYTES NOS\MINERALS\VITAMINS [Concomitant]
     Active Substance: AMINO ACIDS\DEXTROSE\ELECTROLYTES NOS\MINERALS\VITAMINS
     Indication: Product used for unknown indication
     Dosage: 1500 ML, DAILY
     Route: 041
     Dates: start: 20220616, end: 20220714
  13. HUMULIN R [Concomitant]
     Active Substance: INSULIN HUMAN
     Indication: Product used for unknown indication
     Dosage: 0.04 ML, DAILY
     Route: 041
     Dates: start: 20220616, end: 20220714
  14. ALFACALCIDOL [Concomitant]
     Active Substance: ALFACALCIDOL
     Indication: Product used for unknown indication
     Dosage: 0.5 UG, DAILY
     Route: 048
     Dates: start: 20220616, end: 20221107
  15. ELDECALCITOL [Concomitant]
     Active Substance: ELDECALCITOL
     Indication: Product used for unknown indication
     Dosage: 0.75 UG
     Route: 048
     Dates: start: 20221108
  16. BARACLUDE [Concomitant]
     Active Substance: ENTECAVIR
     Indication: Product used for unknown indication
     Dosage: 0.5 MG
     Route: 048
     Dates: start: 20220616
  17. POTASSIUM GLUCONATE [Concomitant]
     Active Substance: POTASSIUM GLUCONATE
     Indication: Product used for unknown indication
     Dosage: 8-12 G/DAY
     Route: 048
     Dates: start: 20220616
  18. FAMOTIDINE [Concomitant]
     Active Substance: FAMOTIDINE
     Indication: Product used for unknown indication
     Dosage: 20 MG
     Route: 048
     Dates: start: 20220616, end: 20230420
  19. MEROPENEM [Concomitant]
     Active Substance: MEROPENEM
     Indication: Product used for unknown indication
     Dosage: 1 G, DAILY
     Route: 041
     Dates: start: 20220804, end: 20220808
  20. CALCIUM CHLORIDE\MALTOSE\POTASSIUM CHLORIDE\SODIUM CHLORIDE\SODIUM LAC [Concomitant]
     Active Substance: CALCIUM CHLORIDE\MALTOSE\POTASSIUM CHLORIDE\SODIUM CHLORIDE\SODIUM LACTATE
     Indication: Product used for unknown indication
     Dosage: 500 ML, DAILY
     Route: 041
     Dates: start: 20220804, end: 20220804
  21. Solita t no.3 [Concomitant]
     Indication: Product used for unknown indication
     Dosage: 1000 ML, DAILY
     Route: 041
     Dates: start: 20220805, end: 20220819
  22. CEFTAZIDIME [Concomitant]
     Active Substance: CEFTAZIDIME
     Indication: Product used for unknown indication
     Dosage: 2 G
     Route: 042
     Dates: start: 20221115, end: 20221121
  23. CEFTAZIDIME [Concomitant]
     Active Substance: CEFTAZIDIME
     Dosage: 2 G
     Route: 042
     Dates: start: 20221205, end: 20221212
  24. CEFTAZIDIME [Concomitant]
     Active Substance: CEFTAZIDIME
     Dosage: 2 G
     Route: 065
     Dates: start: 20230118, end: 20230201
  25. CEFTAZIDIME [Concomitant]
     Active Substance: CEFTAZIDIME
     Dosage: 2 G
     Route: 065
     Dates: start: 20230217, end: 20230301
  26. CEFTAZIDIME [Concomitant]
     Active Substance: CEFTAZIDIME
     Dosage: 2 G
     Route: 042
     Dates: start: 20230518, end: 20230531
  27. CALONAL [Concomitant]
     Active Substance: ACETAMINOPHEN
     Indication: Product used for unknown indication
     Dosage: 6 G, DAILY
     Route: 048
     Dates: start: 20221101, end: 20221108
  28. Fesin [Concomitant]
     Indication: Product used for unknown indication
     Dosage: 40 MG/DOSE, QOD
     Route: 042
     Dates: start: 20230301, end: 20230315
  29. LEVOFLOXACIN [Concomitant]
     Active Substance: LEVOFLOXACIN
     Indication: Product used for unknown indication
     Dosage: 500 MG
     Route: 042
     Dates: start: 20230517, end: 20230518
  30. HUMAN RED BLOOD CELL [Concomitant]
     Active Substance: HUMAN RED BLOOD CELL
     Indication: Product used for unknown indication
     Dosage: 2 UNITS/SINGLE
     Route: 042
     Dates: start: 20230425, end: 20230425
  31. HUMAN RED BLOOD CELL [Concomitant]
     Active Substance: HUMAN RED BLOOD CELL
     Dosage: UNK UNK, SINGLE
     Route: 042
     Dates: start: 20230508, end: 20230508
  32. HUMAN RED BLOOD CELL [Concomitant]
     Active Substance: HUMAN RED BLOOD CELL
     Dosage: UNK UNK, SINGLE
     Route: 042
     Dates: start: 20230522, end: 20230522
  33. LEVOFLOXACIN [Concomitant]
     Active Substance: LEVOFLOXACIN
     Indication: Product used for unknown indication
     Dosage: 500 MG
     Route: 048
     Dates: start: 20221228, end: 20230102
  34. EVENITY [Concomitant]
     Active Substance: ROMOSOZUMAB-AQQG
     Indication: Product used for unknown indication
     Dosage: 210 MG
     Route: 058
     Dates: start: 20230112
  35. PIPERACILLIN NA [Concomitant]
     Indication: Product used for unknown indication
     Dosage: 4 G
     Route: 042
     Dates: start: 20230113, end: 20230118
  36. LEVOFLOXACIN [Concomitant]
     Active Substance: LEVOFLOXACIN
     Indication: Product used for unknown indication
     Dosage: 400 MG
     Route: 048
     Dates: start: 20221223, end: 20221226
  37. LEVOFLOXACIN [Concomitant]
     Active Substance: LEVOFLOXACIN
     Dosage: 500 MG
     Route: 048
     Dates: start: 20230329, end: 20230403
  38. LOXOPROFEN [Concomitant]
     Active Substance: LOXOPROFEN
     Indication: Product used for unknown indication
     Dosage: 60 MG/DOSE
     Route: 048
     Dates: start: 20230104
  39. CALCIUM ASPARTATE [Concomitant]
     Active Substance: CALCIUM ASPARTATE
     Indication: Product used for unknown indication
     Dosage: 600 MG
     Route: 048
     Dates: start: 20230112
  40. ESOMEPRAZOLE [Concomitant]
     Active Substance: ESOMEPRAZOLE
     Indication: Product used for unknown indication
     Dosage: 20 MG
     Route: 048
     Dates: start: 20230421
  41. FUROSEMIDE [Concomitant]
     Active Substance: FUROSEMIDE
     Indication: Product used for unknown indication
     Dosage: 20 MG
     Route: 048
     Dates: start: 20230606, end: 20230606
  42. SPIRONOLACTONE [Concomitant]
     Active Substance: SPIRONOLACTONE
     Indication: Product used for unknown indication
     Dosage: 25 MG
     Route: 048
     Dates: start: 20230607

REACTIONS (9)
  - Symptom recurrence [Not Recovered/Not Resolved]
  - Rib fracture [Recovering/Resolving]
  - Pyrexia [Recovered/Resolved]
  - Lumbar vertebral fracture [Recovering/Resolving]
  - Pneumonia [Recovering/Resolving]
  - Pneumonia [Not Recovered/Not Resolved]
  - Anaemia [Not Recovered/Not Resolved]
  - Pleural effusion [Not Recovered/Not Resolved]
  - Abdominal pain upper [Recovering/Resolving]

NARRATIVE: CASE EVENT DATE: 20220804
